FAERS Safety Report 8573270-6 (Version None)
Quarter: 2012Q3

REPORT INFORMATION
  Report Type: 
  Country: None (occurrence: None)
  Receive Date: 20120806
  Receipt Date: 20120731
  Transmission Date: 20120928
  Serious: Yes (Hospitalization)
  Sender: FDA-Public Use
  Company Number: IT-PFIZER INC-2012171467

PATIENT
  Age: 71 Year
  Sex: Male

DRUGS (2)
  1. HEPARIN [Concomitant]
     Dosage: 16000 IU, UNK
     Route: 058
  2. UNASYN [Suspect]
     Indication: ANTIBIOTIC PROPHYLAXIS
     Dosage: 4.5 G, TOTAL DOSE
     Route: 042
     Dates: start: 20120629, end: 20120629

REACTIONS (4)
  - DYSPNOEA [None]
  - HYPOTENSION [None]
  - HYPERAEMIA [None]
  - TREMOR [None]
